FAERS Safety Report 22291553 (Version 2)
Quarter: 2023Q2

REPORT INFORMATION
  Report Type: Spontaneous
  Country: CA (occurrence: CA)
  Receive Date: 20230506
  Receipt Date: 20230525
  Transmission Date: 20230721
  Serious: Yes (Hospitalization, Other)
  Sender: FDA-Public Use
  Company Number: CA-FreseniusKabi-FK202305866

PATIENT
  Age: 49 Year
  Sex: Female

DRUGS (3)
  1. PROPOFOL [Suspect]
     Active Substance: PROPOFOL
     Indication: General anaesthesia
     Dosage: BELIEVE LESS THAN 2 HOURS
     Route: 042
     Dates: start: 20210521, end: 20210521
  2. ROPINIROLE [Concomitant]
     Active Substance: ROPINIROLE
     Dosage: AT NIGHT
  3. CLONAZEPAM [Concomitant]
     Active Substance: CLONAZEPAM
     Dosage: PRN

REACTIONS (4)
  - Unresponsive to stimuli [Recovered/Resolved]
  - Unresponsive to stimuli [Recovered/Resolved]
  - Areflexia [Recovered/Resolved]
  - Generalised tonic-clonic seizure [Recovered/Resolved]

NARRATIVE: CASE EVENT DATE: 20210521
